FAERS Safety Report 19507840 (Version 3)
Quarter: 2022Q1

REPORT INFORMATION
  Report Type: Spontaneous
  Country: US (occurrence: US)
  Receive Date: 20210708
  Receipt Date: 20220211
  Transmission Date: 20220424
  Serious: No
  Sender: FDA-Public Use
  Company Number: US-PFIZER INC-2021679055

PATIENT
  Age: 60 Year
  Sex: Female
  Weight: 61.23 kg

DRUGS (1)
  1. PREMPRO [Suspect]
     Active Substance: ESTROGENS, CONJUGATED\MEDROXYPROGESTERONE ACETATE
     Dosage: UNK (0.3)

REACTIONS (4)
  - Hot flush [Unknown]
  - Nasopharyngitis [Unknown]
  - Sinusitis [Unknown]
  - Product dispensing error [Unknown]
